FAERS Safety Report 7446621-3 (Version None)
Quarter: 2011Q2

REPORT INFORMATION
  Report Type: 
  Country: None (occurrence: None)
  Receive Date: 20110429
  Receipt Date: 20110428
  Transmission Date: 20111010
  Serious: Yes (Death, Other)
  Sender: FDA-Public Use
  Company Number: PHHY2011NG35826

PATIENT

DRUGS (1)
  1. THIORIDAZINE [Suspect]
     Indication: DEPRESSION
     Dosage: UNK UKN, UNK

REACTIONS (2)
  - DEATH [None]
  - COMA [None]
